FAERS Safety Report 21223227 (Version 1)
Quarter: 2022Q3

REPORT INFORMATION
  Report Type: Spontaneous
  Country: US (occurrence: US)
  Receive Date: 20220817
  Receipt Date: 20220817
  Transmission Date: 20221026
  Serious: Yes (Other)
  Sender: FDA-Public Use
  Company Number: US-UPSHER-SMITH LABORATORIES, LLC-2022USL00584

PATIENT

DRUGS (3)
  1. ISOTRETINOIN [Suspect]
     Active Substance: ISOTRETINOIN
     Dosage: 60 MG, UNKNOWN
     Dates: start: 202110, end: 202112
  2. ISOTRETINOIN [Suspect]
     Active Substance: ISOTRETINOIN
     Dosage: 20 MG, UNKNOWN
     Dates: start: 2022, end: 2022
  3. ISOTRETINOIN [Suspect]
     Active Substance: ISOTRETINOIN
     Dosage: 40 MG, UNKNOWN
     Dates: start: 2022

REACTIONS (1)
  - Depression [Unknown]

NARRATIVE: CASE EVENT DATE: 20210101
